FAERS Safety Report 18087263 (Version 3)
Quarter: 2020Q3

REPORT INFORMATION
  Report Type: Spontaneous
  Country: US (occurrence: US)
  Receive Date: 20200729
  Receipt Date: 20200831
  Transmission Date: 20201103
  Serious: Yes (Other)
  Sender: FDA-Public Use
  Company Number: US-PFIZER INC-2020286676

PATIENT
  Age: 70 Year
  Sex: Female
  Weight: 68.95 kg

DRUGS (2)
  1. DILTIAZEM. [Concomitant]
     Active Substance: DILTIAZEM
     Indication: HEART RATE IRREGULAR
     Dosage: 120 MG, 1X/DAY
  2. TOBRAMYCIN. [Suspect]
     Active Substance: TOBRAMYCIN
     Dosage: UNK, 2X/DAY (IN THE MORNING AND NIGHT)
     Dates: start: 20200515, end: 20200518

REACTIONS (5)
  - Vocal cord dysfunction [Unknown]
  - Aphonia [Unknown]
  - Dyspnoea [Unknown]
  - Pneumonia [Unknown]
  - Laryngospasm [Unknown]
